FAERS Safety Report 4558111-6 (Version None)
Quarter: 2005Q1

REPORT INFORMATION
  Report Type: 
  Country: None (occurrence: None)
  Receive Date: 20050103
  Receipt Date: 20040920
  Transmission Date: 20050727
  Serious: Yes (Other)
  Sender: FDA-Public Use
  Company Number: 2004UW19616

PATIENT
  Age: 40 Year
  Sex: Female
  Weight: 96.6162 kg

DRUGS (5)
  1. CRESTOR [Suspect]
     Indication: BLOOD CHOLESTEROL INCREASED
     Dosage: 10 MG PO
     Route: 048
  2. PAXIL [Concomitant]
  3. ADANDAMET [Concomitant]
  4. RISPERDAL [Concomitant]
  5. LEVOTHYROXINE [Concomitant]

REACTIONS (1)
  - ALOPECIA [None]
